FAERS Safety Report 18941209 (Version 1)
Quarter: 2021Q1

REPORT INFORMATION
  Report Type: Report from Study
  Country: CA (occurrence: CA)
  Receive Date: 20210225
  Receipt Date: 20210225
  Transmission Date: 20210420
  Serious: Yes (Other)
  Sender: FDA-Public Use
  Company Number: CA-PFIZER INC-2021171634

PATIENT
  Sex: Female

DRUGS (8)
  1. COLCHICINE\PROBENECID [Concomitant]
     Active Substance: COLCHICINE\PROBENECID
     Route: 065
  2. VITAMIN D [COLECALCIFEROL] [Concomitant]
     Active Substance: CHOLECALCIFEROL
     Route: 065
  3. FLUOXETINE [Concomitant]
     Active Substance: FLUOXETINE HYDROCHLORIDE
     Route: 065
  4. CELECOXIB/LIDOCAINE HYDROCHLORIDE/MENTHOL [Concomitant]
     Dosage: 200 MG, 2X/DAY
     Route: 048
  5. LEFLUNOMIDE. [Suspect]
     Active Substance: LEFLUNOMIDE
     Dosage: 20 MG, 1X/DAY
     Route: 065
  6. MORPHINE [Concomitant]
     Active Substance: MORPHINE
     Dosage: 5 MG
     Route: 048
  7. METHOTREXATE SODIUM. [Suspect]
     Active Substance: METHOTREXATE SODIUM
     Dosage: 3 DF
     Route: 058
  8. FOLIC ACID. [Concomitant]
     Active Substance: FOLIC ACID
     Dosage: 5 MG, 1X/DAY
     Route: 048

REACTIONS (37)
  - Arthralgia [Unknown]
  - Decreased appetite [Unknown]
  - Nail pitting [Unknown]
  - Fatigue [Unknown]
  - Gastrooesophageal reflux disease [Unknown]
  - Joint swelling [Unknown]
  - Nail dystrophy [Unknown]
  - Oedema [Unknown]
  - Gait disturbance [Unknown]
  - Musculoskeletal stiffness [Unknown]
  - Post-traumatic stress disorder [Unknown]
  - Premature menopause [Unknown]
  - Rash [Unknown]
  - Headache [Unknown]
  - Arthritis [Unknown]
  - Metatarsalgia [Unknown]
  - Skin lesion [Unknown]
  - Weight decreased [Unknown]
  - Asthenia [Unknown]
  - Condition aggravated [Unknown]
  - Diarrhoea [Unknown]
  - Hyperplasia [Unknown]
  - Menstruation normal [Unknown]
  - Nausea [Unknown]
  - Tenosynovitis [Unknown]
  - Ulcer [Unknown]
  - Bone erosion [Unknown]
  - Dactylitis [Unknown]
  - Pain in extremity [Unknown]
  - Psoriasis [Unknown]
  - Psoriatic arthropathy [Unknown]
  - Abdominal pain [Unknown]
  - Foot deformity [Unknown]
  - Gout [Unknown]
  - Hyperaemia [Unknown]
  - Pain [Unknown]
  - Synovitis [Unknown]
